FAERS Safety Report 8990553 (Version 1)
Quarter: 2012Q4

REPORT INFORMATION
  Report Type: 
  Country: TR (occurrence: TR)
  Receive Date: 20121228
  Receipt Date: 20121228
  Transmission Date: 20130627
  Serious: Yes (Other)
  Sender: FDA-Public Use
  Company Number: TR-BRISTOL-MYERS SQUIBB COMPANY-17249293

PATIENT
  Age: 2 Year
  Sex: Male
  Weight: 15 kg

DRUGS (4)
  1. CEFEPIME HCL [Suspect]
     Indication: FEBRILE NEUTROPENIA
  2. AMIKACIN SULFATE [Suspect]
     Indication: FEBRILE NEUTROPENIA
  3. ETOPOSIDE [Suspect]
     Indication: ACUTE MYELOID LEUKAEMIA
  4. CYTARABINE [Suspect]
     Indication: ACUTE MYELOID LEUKAEMIA

REACTIONS (6)
  - Status epilepticus [Recovered/Resolved]
  - Neurotoxicity [None]
  - Agitation [None]
  - Hallucination [None]
  - Haemoglobin decreased [None]
  - Platelet count decreased [None]
